FAERS Safety Report 11434437 (Version 2)
Quarter: 2015Q4

REPORT INFORMATION
  Report Type: Spontaneous
  Country: CN (occurrence: CN)
  Receive Date: 20150831
  Receipt Date: 20151029
  Transmission Date: 20160304
  Serious: Yes (Other)
  Sender: FDA-Public Use
  Company Number: CN-BAYER-2015-408562

PATIENT
  Age: 57 Year
  Sex: Female

DRUGS (3)
  1. GLUCOBAY [Suspect]
     Active Substance: ACARBOSE
     Dosage: 1 DF, QD
     Route: 048
     Dates: start: 2006
  2. GLICLAZIDE [Concomitant]
     Active Substance: GLICLAZIDE
     Dosage: UNK
     Route: 048
     Dates: end: 2015
  3. MELBIN [METFORMIN HYDROCHLORIDE] [Concomitant]
     Dosage: UNK
     Route: 048

REACTIONS (2)
  - Nasopharyngitis [Recovered/Resolved]
  - Blood glucose increased [None]
